FAERS Safety Report 10161996 (Version 2)
Quarter: 2014Q2

REPORT INFORMATION
  Report Type: Spontaneous
  Country: US (occurrence: None)
  Receive Date: 20140507
  Receipt Date: 20140515
  Transmission Date: 20141212
  Serious: Yes (Hospitalization)
  Sender: FDA-Public Use
  Company Number: 2014-US-004997

PATIENT
  Age: 17 Year
  Sex: Female

DRUGS (6)
  1. XYREM (500 MG/ML SOLUTION )(SODIUM OXYBATE) [Suspect]
     Indication: NARCOLEPSY
     Route: 048
     Dates: start: 201305, end: 2013
  2. XYREM (500 MG/ML SOLUTION )(SODIUM OXYBATE) [Suspect]
     Indication: CATAPLEXY
     Route: 048
     Dates: start: 201305, end: 2013
  3. NEURONTIN (GABAPENTIN) [Suspect]
     Indication: PRODUCT USED FOR UNKNOWN INDICATION
     Route: 048
  4. XANAX (ALPRAZOLAM) [Suspect]
     Indication: ANXIETY
  5. NUVIGIL (ARMODAFINIL) [Concomitant]
  6. FOCALIN (DEXMETHYLPHENIDATE HYDROCHLORIDE) [Concomitant]

REACTIONS (5)
  - Hospitalisation [None]
  - Somnolence [None]
  - Off label use [None]
  - Anxiety [None]
  - Toxicity to various agents [None]
